FAERS Safety Report 14618940 (Version 2)
Quarter: 2025Q2

REPORT INFORMATION
  Report Type: Spontaneous
  Country: US (occurrence: US)
  Receive Date: 20180309
  Receipt Date: 20250519
  Transmission Date: 20250716
  Serious: No
  Sender: PFIZER
  Company Number: US-PFIZER INC-2018097908

PATIENT
  Age: 50 Year
  Sex: Female

DRUGS (1)
  1. XELJANZ XR [Suspect]
     Active Substance: TOFACITINIB CITRATE
     Indication: Rheumatoid arthritis
     Dosage: 11 MG, 1X/DAY (11 MG ONE TABLET DAILY, EVERY MORNING)
     Dates: start: 2017

REACTIONS (2)
  - Frustration tolerance decreased [Unknown]
  - Product use issue [Unknown]
